FAERS Safety Report 6278042-3 (Version None)
Quarter: 2009Q3

REPORT INFORMATION
  Report Type: 
  Country: None (occurrence: None)
  Receive Date: 20090722
  Receipt Date: 20090717
  Transmission Date: 20100115
  Serious: Yes (Death)
  Sender: FDA-Public Use
  Company Number: PHHY2009AR29837

PATIENT
  Sex: Male

DRUGS (2)
  1. EXELON [Suspect]
     Dosage: 1.5 MG
     Dates: start: 20081101
  2. EXELON [Suspect]
     Dosage: 3 MG, BID

REACTIONS (1)
  - DEATH [None]
